FAERS Safety Report 9136197 (Version 1)
Quarter: 2013Q1

REPORT INFORMATION
  Report Type: Spontaneous
  Country: US (occurrence: US)
  Receive Date: 20130304
  Receipt Date: 20130304
  Transmission Date: 20140127
  Serious: No
  Sender: FDA-Public Use
  Company Number: US-ABBOTT-12P-163-0921781-00

PATIENT
  Sex: Male
  Weight: 124.85 kg

DRUGS (9)
  1. ANDROGEL 1% [Suspect]
     Indication: BLOOD TESTOSTERONE DECREASED
     Route: 061
  2. ANDROGEL 1% [Suspect]
     Route: 061
  3. ANDROGEL 1% [Suspect]
     Route: 061
  4. PREDAXA [Concomitant]
     Indication: PRODUCT USED FOR UNKNOWN INDICATION
  5. MULTAQ [Concomitant]
     Indication: PRODUCT USED FOR UNKNOWN INDICATION
  6. SPIRONOLACTONE [Concomitant]
     Indication: PRODUCT USED FOR UNKNOWN INDICATION
  7. UNKNOWN OTC STOOL SOFTENER [Concomitant]
     Indication: PRODUCT USED FOR UNKNOWN INDICATION
  8. ZONISIMIDE [Concomitant]
     Indication: WEIGHT LOSS DIET
     Dates: start: 201109
  9. WELLBUTRIN [Concomitant]
     Indication: WEIGHT LOSS DIET
     Dates: start: 201109

REACTIONS (5)
  - Urinary tract pain [Recovered/Resolved]
  - Tenderness [Recovered/Resolved]
  - Dysuria [Recovered/Resolved]
  - Dyspareunia [Recovered/Resolved]
  - Prostatic pain [Recovered/Resolved]
